FAERS Safety Report 23521133 (Version 2)
Quarter: 2024Q1

REPORT INFORMATION
  Report Type: Spontaneous
  Country: US (occurrence: US)
  Receive Date: 20240214
  Receipt Date: 20240304
  Transmission Date: 20240410
  Serious: Yes (Hospitalization)
  Sender: FDA-Public Use
  Company Number: US-TEVA-VS-3153984

PATIENT
  Age: 48 Year
  Sex: Male

DRUGS (2)
  1. CARBAMAZEPINE [Suspect]
     Active Substance: CARBAMAZEPINE
     Indication: Paraphilia
     Route: 065
  2. ASPIRIN [Suspect]
     Active Substance: ASPIRIN
     Indication: Suicide attempt
     Route: 065

REACTIONS (5)
  - Treatment failure [Unknown]
  - Suicide attempt [Unknown]
  - Hyponatraemia [Unknown]
  - Intentional overdose [Unknown]
  - Drug eruption [Unknown]
